FAERS Safety Report 9606284 (Version 4)
Quarter: 2013Q4

REPORT INFORMATION
  Report Type: Spontaneous
  Country: JP (occurrence: JP)
  Receive Date: 20131008
  Receipt Date: 20131227
  Transmission Date: 20140711
  Serious: Yes (Hospitalization, Other)
  Sender: FDA-Public Use
  Company Number: JP-KOWA-2013S1001766

PATIENT
  Age: 84 Year
  Sex: Female
  Weight: 61 kg

DRUGS (7)
  1. LIVALO [Suspect]
     Indication: DYSLIPIDAEMIA
     Route: 048
     Dates: start: 20090309, end: 20130907
  2. ATENERATE [Concomitant]
     Indication: HYPERTENSION
     Route: 048
     Dates: start: 20120424
  3. BAYASPIRIN [Concomitant]
     Indication: CAROTID ARTERY STENOSIS
     Route: 048
     Dates: start: 20101007
  4. DIGOXIN [Concomitant]
     Indication: CARDIAC FAILURE
     Route: 048
     Dates: start: 20130326
  5. DIPYRIDAMOL [Concomitant]
     Indication: MYOCARDIAL ISCHAEMIA
     Route: 048
     Dates: start: 20120315
  6. NEWTOLIDE [Concomitant]
     Indication: HYPERTENSION
     Route: 048
     Dates: start: 20050621
  7. KETOPROFEN [Concomitant]
     Indication: BACK PAIN
     Route: 062
     Dates: start: 20130521

REACTIONS (1)
  - Hyperglycaemia [Recovering/Resolving]
